FAERS Safety Report 15284357 (Version 1)
Quarter: 2018Q3

REPORT INFORMATION
  Report Type: Spontaneous
  Country: US (occurrence: US)
  Receive Date: 20180801
  Receipt Date: 20180801
  Transmission Date: 20181010
  Serious: Yes (Hospitalization)
  Sender: FDA-Public Use
  Company Number: None

PATIENT
  Sex: Female

DRUGS (18)
  1. AMITIZA [Concomitant]
     Active Substance: LUBIPROSTONE
  2. BACLOFEN 10MG [Concomitant]
     Active Substance: BACLOFEN
  3. BUPROPION XL 300MG [Concomitant]
     Active Substance: BUPROPION
  4. OXYCODONE 15MG [Concomitant]
     Active Substance: OXYCODONE
  5. HYDROXYCHLOROQUINE 200MG [Concomitant]
     Active Substance: HYDROXYCHLOROQUINE
  6. XELJANZ [Suspect]
     Active Substance: TOFACITINIB CITRATE
     Indication: RHEUMATOID ARTHRITIS
     Route: 048
     Dates: start: 20180612
  7. CARVEDILOL 12.5MG [Concomitant]
     Active Substance: CARVEDILOL
  8. FUROSEMIDE 20MG [Concomitant]
     Active Substance: FUROSEMIDE
  9. OXYCONTIN 40MG [Concomitant]
  10. FENTANYL 100MCG [Concomitant]
  11. FOLIC ACID 1 MG [Concomitant]
  12. LEVOTHYROXINE 125MCG [Concomitant]
     Active Substance: LEVOTHYROXINE SODIUM
  13. TRAZODONE [Concomitant]
     Active Substance: TRAZODONE HYDROCHLORIDE
  14. SULFASALAZINE DR 500MG [Concomitant]
     Active Substance: SULFASALAZINE
  15. DIAZEPAM 5MG [Concomitant]
     Active Substance: DIAZEPAM
  16. GAPAPENTIN 400MG [Concomitant]
  17. METHOTREXATE 2.5MG [Concomitant]
     Active Substance: METHOTREXATE
  18. VENLAFAXINE ER 150MG [Concomitant]
     Active Substance: VENLAFAXINE HYDROCHLORIDE

REACTIONS (1)
  - Surgery [None]
